FAERS Safety Report 8966539 (Version 1)
Quarter: 2012Q4

REPORT INFORMATION
  Report Type: 
  Country: US (occurrence: US)
  Receive Date: 20121217
  Receipt Date: 20121217
  Transmission Date: 20130627
  Serious: No
  Sender: FDA-Public Use
  Company Number: US-PFIZER INC-2012317204

PATIENT
  Age: 47 Year
  Sex: Male
  Weight: 79.37 kg

DRUGS (2)
  1. LIPITOR [Suspect]
     Indication: HIGH CHOLESTEROL
     Dosage: UNK, daily
     Route: 048
  2. NIACIN [Concomitant]
     Indication: HIGH CHOLESTEROL
     Dosage: 1.5 g, daily

REACTIONS (1)
  - Blood creatine phosphokinase increased [Unknown]
